FAERS Safety Report 25016743 (Version 1)
Quarter: 2025Q1

REPORT INFORMATION
  Report Type: Spontaneous
  Country: US (occurrence: US)
  Receive Date: 20250227
  Receipt Date: 20250227
  Transmission Date: 20250409
  Serious: Yes (Other)
  Sender: CHEPLAPHARM
  Company Number: None

PATIENT
  Age: 16 Year
  Sex: Female

DRUGS (1)
  1. HYDROXYUREA [Suspect]
     Active Substance: HYDROXYUREA
     Indication: Sickle cell disease

REACTIONS (6)
  - Respiratory distress [Unknown]
  - Hemiparesis [Unknown]
  - Acute myocardial infarction [Unknown]
  - Deep vein thrombosis [Unknown]
  - Acute chest syndrome [Unknown]
  - Thrombocytopenia [Unknown]
